FAERS Safety Report 7326404-5 (Version None)
Quarter: 2011Q1

REPORT INFORMATION
  Report Type: 
  Country: None (occurrence: None)
  Receive Date: 20110302
  Receipt Date: 20110221
  Transmission Date: 20110831
  Serious: Yes (Disabling, Other)
  Sender: FDA-Public Use
  Company Number: IN-SANOFI-AVENTIS-2011SA010759

PATIENT
  Sex: Male

DRUGS (12)
  1. WARFARIN [Interacting]
     Indication: PULMONARY EMBOLISM
  2. WARFARIN [Interacting]
     Indication: FACTOR V DEFICIENCY
  3. METRONIDAZOLE [Interacting]
     Indication: ANTIBIOTIC THERAPY
  4. CLOPIDOGREL BISULFATE [Interacting]
     Route: 065
  5. ASPIRIN [Interacting]
     Route: 065
  6. ERYTHROMYCIN [Interacting]
     Indication: ANTIBIOTIC THERAPY
  7. CIPROFLOXACIN [Interacting]
     Indication: ANTIBIOTIC THERAPY
  8. VITAMIN K TAB [Concomitant]
  9. ASPIRIN [Interacting]
     Indication: ANTIPLATELET THERAPY
     Route: 065
  10. MEROPENEM [Interacting]
     Indication: ANTIBIOTIC THERAPY
     Route: 030
  11. CLOPIDOGREL BISULFATE [Suspect]
     Indication: ANTIPLATELET THERAPY
     Route: 065
  12. TEICOPLANIN SODIUM [Interacting]
     Indication: ANTIBIOTIC THERAPY

REACTIONS (10)
  - HYPHAEMA [None]
  - DRUG INTERACTION [None]
  - VISUAL ACUITY REDUCED [None]
  - EYE PAIN [None]
  - HEADACHE [None]
  - DECREASED APPETITE [None]
  - INTRAOCULAR PRESSURE INCREASED [None]
  - INTERNATIONAL NORMALISED RATIO INCREASED [None]
  - PYREXIA [None]
  - NAUSEA [None]
